FAERS Safety Report 13984560 (Version 2)
Quarter: 2017Q3

REPORT INFORMATION
  Report Type: Spontaneous
  Country: AT (occurrence: AT)
  Receive Date: 20170918
  Receipt Date: 20170927
  Transmission Date: 20171128
  Serious: Yes (Life-Threatening, Hospitalization, Other)
  Sender: FDA-Public Use
  Company Number: PHHY2017AT137108

PATIENT
  Age: 78 Year
  Sex: Female

DRUGS (3)
  1. INSULIN ASPART PROTAMINE [Concomitant]
     Dosage: 12 IU, QHS
     Route: 065
  2. INSULIN ASPART PROTAMINE [Concomitant]
     Indication: DIABETES MELLITUS
     Dosage: 16 IU (IN MORNING)
     Route: 065
  3. METFORMIN [Suspect]
     Active Substance: METFORMIN HYDROCHLORIDE
     Indication: DIABETES MELLITUS
     Dosage: 850 MG, BID
     Route: 065

REACTIONS (6)
  - Somnolence [Recovering/Resolving]
  - Ketoacidosis [Recovering/Resolving]
  - Lactic acidosis [Recovering/Resolving]
  - Vomiting [Recovering/Resolving]
  - Nausea [Recovering/Resolving]
  - Kussmaul respiration [Recovering/Resolving]
